APPROVED DRUG PRODUCT: AMOXICILLIN
Active Ingredient: AMOXICILLIN
Strength: 125MG/5ML
Dosage Form/Route: FOR SUSPENSION;ORAL
Application: A062090 | Product #001
Applicant: MYLAN PHARMACEUTICALS INC
Approved: Approved Prior to Jan 1, 1982 | RLD: No | RS: No | Type: DISCN